FAERS Safety Report 8711398 (Version 9)
Quarter: 2014Q1

REPORT INFORMATION
  Report Type: Report from Study
  Country: FR (occurrence: FR)
  Receive Date: 20120807
  Receipt Date: 20140220
  Transmission Date: 20141002
  Serious: Yes (Other)
  Sender: FDA-Public Use
  Company Number: FR-ROCHE-1092238

PATIENT
  Age: 60 Year
  Sex: Female
  Weight: 88 kg

DRUGS (26)
  1. RITUXIMAB [Suspect]
     Indication: B-CELL LYMPHOMA
     Dosage: LAST DOSE PRIOR TO SAE 04 JUN 2012
     Route: 042
     Dates: start: 20120507
  2. RITUXIMAB [Suspect]
     Route: 042
     Dates: start: 20120702
  3. RHUPH20/RITUXIMAB [Suspect]
     Indication: B-CELL LYMPHOMA
     Dosage: LAST DOSE PRIOR TO SAE 04 JUN 2012
     Route: 058
     Dates: start: 20120604
  4. PRETERAX [Concomitant]
     Indication: HYPERTENSION
     Route: 065
     Dates: start: 20090115
  5. IKARAN [Concomitant]
     Indication: MIGRAINE
     Dosage: 2X 5 MG
     Route: 065
     Dates: start: 2004
  6. ATARAX (FRANCE) [Concomitant]
     Route: 065
     Dates: start: 2010
  7. TAHOR [Concomitant]
     Indication: HYPERCHOLESTEROLAEMIA
     Route: 065
     Dates: start: 20090115
  8. GAVISCON ACID [Concomitant]
     Indication: PROPHYLAXIS
     Route: 065
     Dates: start: 20120402
  9. DOLIPRANE [Concomitant]
     Indication: PROPHYLAXIS
     Dosage: 4X500 MG
     Route: 065
     Dates: start: 2002
  10. BACTRIM FORTE [Concomitant]
     Indication: PROPHYLAXIS
     Dosage: 1 TABLET
     Route: 065
     Dates: start: 20120507
  11. LEDERFOLINE [Concomitant]
     Indication: PROPHYLAXIS
     Route: 065
     Dates: start: 20120507
  12. ZELITREX [Concomitant]
     Indication: PROPHYLAXIS
     Dosage: 2X500 MG
     Route: 065
     Dates: start: 20120507
  13. INEXIUM [Concomitant]
     Indication: PROPHYLAXIS
     Route: 065
     Dates: start: 20120507
  14. ZOPHREN [Concomitant]
     Indication: PROPHYLAXIS
     Route: 065
     Dates: start: 20120507
  15. ZOPHREN [Concomitant]
     Indication: VOMITING
  16. VOGALENE [Concomitant]
     Indication: PROPHYLAXIS
     Route: 065
     Dates: start: 20120507
  17. VOGALENE [Concomitant]
     Indication: VOMITING
  18. PERFALGAN [Concomitant]
     Indication: PREMEDICATION
     Route: 065
     Dates: start: 20120507
  19. XANAX [Concomitant]
     Indication: ANXIETY
     Route: 065
     Dates: start: 20120507, end: 20120508
  20. MYOLASTAN [Concomitant]
     Indication: MYALGIA
     Route: 065
     Dates: start: 20120507, end: 20120508
  21. MYOLASTAN [Concomitant]
     Indication: PAIN IN EXTREMITY
  22. HEMISUCCINATE D^HYDROCORTISONE [Concomitant]
     Indication: PREMEDICATION
     Route: 065
     Dates: start: 20120507, end: 20120507
  23. NEULASTA [Concomitant]
     Dosage: TTD
     Route: 065
     Dates: start: 20120507, end: 20120507
  24. PARACETAMOL [Concomitant]
     Indication: PAIN IN EXTREMITY
     Dosage: TTD
     Route: 065
     Dates: start: 20120507, end: 20120508
  25. PARACETAMOL [Concomitant]
     Indication: HEADACHE
  26. POLARAMINE [Concomitant]
     Indication: PREMEDICATION
     Route: 065
     Dates: start: 20120604

REACTIONS (1)
  - Injection site reaction [Recovered/Resolved]
